FAERS Safety Report 7483714-9 (Version None)
Quarter: 2011Q2

REPORT INFORMATION
  Report Type: 
  Country: None (occurrence: None)
  Receive Date: 20110517
  Receipt Date: 20110503
  Transmission Date: 20111010
  Serious: Yes (Hospitalization, Other)
  Sender: FDA-Public Use
  Company Number: PHHY2011EC39317

PATIENT
  Sex: Female

DRUGS (4)
  1. ACETYL SALICYLIC ACID USP BAT [Concomitant]
  2. EUTIROX [Concomitant]
  3. ZOLEDRONIC ACID [Suspect]
     Indication: OSTEOPOROSIS
     Dosage: 5MG/100ML
     Route: 042
     Dates: start: 20100401
  4. COZAAR [Concomitant]

REACTIONS (7)
  - EFFUSION [None]
  - VERTEBRAL COLUMN MASS [None]
  - BACK PAIN [None]
  - PNEUMONIA [None]
  - FALL [None]
  - NECK PAIN [None]
  - FEELING COLD [None]
